FAERS Safety Report 20458345 (Version 3)
Quarter: 2022Q1

REPORT INFORMATION
  Report Type: Spontaneous
  Country: JP (occurrence: JP)
  Receive Date: 20220211
  Receipt Date: 20220307
  Transmission Date: 20220423
  Serious: No
  Sender: FDA-Public Use
  Company Number: JP-JNJJAKJPN-J22005961

PATIENT
  Age: 79 Year
  Sex: Female
  Weight: 44 kg

DRUGS (1)
  1. SIMPONI [Suspect]
     Active Substance: GOLIMUMAB
     Indication: Rheumatoid arthritis
     Dosage: STRENGTH:  50.00 MG / 0.50 ML
     Route: 058

REACTIONS (5)
  - Device deployment issue [Recovered/Resolved]
  - Needle issue [Unknown]
  - Injury associated with device [Recovered/Resolved]
  - Administration site pain [Recovered/Resolved]
  - Administration site haemorrhage [Unknown]

NARRATIVE: CASE EVENT DATE: 20220126
